FAERS Safety Report 8969893 (Version 1)
Quarter: 2012Q4

REPORT INFORMATION
  Report Type: 
  Country: US (occurrence: US)
  Receive Date: 20121218
  Receipt Date: 20121218
  Transmission Date: 20130627
  Serious: No
  Sender: FDA-Public Use
  Company Number: US-BRISTOL-MYERS SQUIBB COMPANY-16218430

PATIENT
  Age: 51 Year
  Sex: Female

DRUGS (4)
  1. ABILIFY [Suspect]
     Dosage: started 2years ago;stopped and restarted on 19Oct2011
  2. PROZAC [Concomitant]
  3. NEURONTIN [Concomitant]
  4. KLONOPIN [Concomitant]

REACTIONS (1)
  - Tremor [Unknown]
